FAERS Safety Report 4753215-7 (Version None)
Quarter: 2005Q3

REPORT INFORMATION
  Report Type: 
  Country: None (occurrence: None)
  Receive Date: 20050824
  Receipt Date: 20050804
  Transmission Date: 20060218
  Serious: Yes (Other)
  Sender: FDA-Public Use
  Company Number: USA0508104662

PATIENT
  Age: 59 Year
  Sex: Female

DRUGS (3)
  1. EVISTA [Suspect]
     Dates: start: 20000101
  2. MULTIVITAMINS NOS (MULTIVITAMINS NOS) [Concomitant]
  3. ASPIRIN [Concomitant]

REACTIONS (1)
  - UTERINE CANCER [None]
